FAERS Safety Report 18622823 (Version 1)
Quarter: 2020Q4

REPORT INFORMATION
  Report Type: Spontaneous
  Country: US (occurrence: US)
  Receive Date: 20201216
  Receipt Date: 20201216
  Transmission Date: 20210114
  Serious: Yes (Death, Hospitalization)
  Sender: FDA-Public Use
  Company Number: None

PATIENT
  Age: 89 Year
  Sex: Female

DRUGS (1)
  1. RETACRIT [Suspect]
     Active Substance: EPOETIN ALFA-EPBX
     Indication: NEPHROGENIC ANAEMIA
     Dosage: ?          OTHER FREQUENCY:EVERY 10 DAYS;??
     Route: 058
     Dates: start: 20200330, end: 20201213

REACTIONS (3)
  - Asthenia [None]
  - Blood count abnormal [None]
  - Dyspnoea [None]

NARRATIVE: CASE EVENT DATE: 20201213
